FAERS Safety Report 15548244 (Version 1)
Quarter: 2018Q4

REPORT INFORMATION
  Report Type: Report from Study
  Country: US (occurrence: US)
  Receive Date: 20181024
  Receipt Date: 20181024
  Transmission Date: 20190205
  Serious: Yes (Death, Other)
  Sender: FDA-Public Use
  Company Number: US-GILEAD-2018-0370354

PATIENT
  Age: 41 Year
  Sex: Male
  Weight: 117.91 kg

DRUGS (5)
  1. LEDIPASVIR/SOFOSBUVIR [Suspect]
     Active Substance: LEDIPASVIR\SOFOSBUVIR
     Indication: HEPATITIS C
     Dosage: 1 DF, QD
     Route: 048
     Dates: start: 2017, end: 2017
  2. FUROSEMIDE. [Concomitant]
     Active Substance: FUROSEMIDE
  3. SPIRONOLACTONE. [Concomitant]
     Active Substance: SPIRONOLACTONE
  4. NADOLOL. [Concomitant]
     Active Substance: NADOLOL
  5. ATROVENT [Concomitant]
     Active Substance: IPRATROPIUM BROMIDE

REACTIONS (5)
  - Cardiac failure [Fatal]
  - Fall [Fatal]
  - Weight decreased [Not Recovered/Not Resolved]
  - Head injury [Fatal]
  - Malaise [Not Recovered/Not Resolved]
